FAERS Safety Report 7645444-X (Version None)
Quarter: 2011Q3

REPORT INFORMATION
  Report Type: 
  Country: None (occurrence: None)
  Receive Date: 20110729
  Receipt Date: 20110725
  Transmission Date: 20111222
  Serious: Yes (Other)
  Sender: FDA-Public Use
  Company Number: DE-PFIZER INC-2011133271

PATIENT
  Age: 10 Year
  Sex: Male
  Weight: 21.6 kg

DRUGS (3)
  1. GENOTROPIN [Suspect]
     Dosage: 0.7 MG, 1X/DAY
     Route: 058
     Dates: start: 20110616, end: 20110617
  2. GENOTROPIN [Suspect]
     Indication: GROWTH HORMONE DEFICIENCY
     Dosage: 0.7 MG, 1X/DAY
     Route: 058
     Dates: start: 20110530, end: 20110606
  3. GENOTROPIN [Suspect]
     Dosage: 0.4 MG, 1X/DAY

REACTIONS (1)
  - VOMITING [None]
